FAERS Safety Report 13598995 (Version 1)
Quarter: 2020Q3

REPORT INFORMATION
  Report Type: Report from Study
  Country: JP (occurrence: JP)
  Receive Date: 20170531
  Receipt Date: 20170531
  Transmission Date: 20201105
  Serious: Yes (Hospitalization)
  Sender: FDA-Public Use
  Company Number: JP-ASTRAZENECA-2016SF12855

PATIENT
  Age: 24722 Day
  Sex: Male

DRUGS (22)
  1. MEDI4736 [Suspect]
     Active Substance: DURVALUMAB
     Indication: NON-SMALL CELL LUNG CANCER
     Route: 042
     Dates: start: 20160415, end: 20160415
  2. MEDI4736 [Suspect]
     Active Substance: DURVALUMAB
     Indication: NON-SMALL CELL LUNG CANCER
     Route: 042
     Dates: start: 20170120
  3. MEDI4736 [Suspect]
     Active Substance: DURVALUMAB
     Indication: NON-SMALL CELL LUNG CANCER
     Route: 042
     Dates: start: 20160513, end: 20160513
  4. MEDI4736 [Suspect]
     Active Substance: DURVALUMAB
     Indication: NON-SMALL CELL LUNG CANCER
     Route: 042
     Dates: start: 20170224
  5. TREMELIMUMAB. [Suspect]
     Active Substance: TREMELIMUMAB
     Indication: NON-SMALL CELL LUNG CANCER
     Route: 042
     Dates: start: 20160513, end: 20160513
  6. MEDI4736 [Suspect]
     Active Substance: DURVALUMAB
     Indication: NON-SMALL CELL LUNG CANCER
     Route: 042
     Dates: start: 20160930, end: 20160930
  7. MEDI4736 [Suspect]
     Active Substance: DURVALUMAB
     Indication: NON-SMALL CELL LUNG CANCER
     Route: 042
     Dates: start: 20160317, end: 20160317
  8. MEDI4736 [Suspect]
     Active Substance: DURVALUMAB
     Indication: NON-SMALL CELL LUNG CANCER
     Route: 042
     Dates: start: 20160708, end: 20160708
  9. MEDI4736 [Suspect]
     Active Substance: DURVALUMAB
     Indication: NON-SMALL CELL LUNG CANCER
     Route: 042
     Dates: start: 20161028, end: 20161028
  10. TREMELIMUMAB. [Suspect]
     Active Substance: TREMELIMUMAB
     Indication: NON-SMALL CELL LUNG CANCER
     Route: 042
     Dates: start: 20160415, end: 20160415
  11. MICAMLO [Concomitant]
     Active Substance: AMLODIPINE BESYLATE\TELMISARTAN
     Indication: HYPERTENSION
     Route: 048
     Dates: end: 20161022
  12. IOPAMIRON [Concomitant]
     Active Substance: IOPAMIDOL
     Dosage: 100 ML EVERY 6 WEEKS
     Route: 042
     Dates: start: 20160428
  13. MEDI4736 [Suspect]
     Active Substance: DURVALUMAB
     Indication: NON-SMALL CELL LUNG CANCER
     Route: 042
     Dates: start: 20161115, end: 20161115
  14. DOXAZOSIN [Concomitant]
     Active Substance: DOXAZOSIN MESYLATE
     Indication: HYPERTENSION
     Route: 048
     Dates: end: 20161022
  15. RINDERON (BETAMETHASONE) [Concomitant]
     Active Substance: BETAMETHASONE
     Indication: RASH
     Dosage: 0.12% AS REQUIRED
     Route: 058
     Dates: start: 20160513
  16. MEDI4736 [Suspect]
     Active Substance: DURVALUMAB
     Indication: NON-SMALL CELL LUNG CANCER
     Route: 042
     Dates: start: 20160610, end: 20160610
  17. MEDI4736 [Suspect]
     Active Substance: DURVALUMAB
     Indication: NON-SMALL CELL LUNG CANCER
     Route: 042
     Dates: start: 20160805, end: 20160805
  18. MEDI4736 [Suspect]
     Active Substance: DURVALUMAB
     Indication: NON-SMALL CELL LUNG CANCER
     Route: 042
     Dates: start: 20160902, end: 20160902
  19. TREMELIMUMAB. [Suspect]
     Active Substance: TREMELIMUMAB
     Indication: NON-SMALL CELL LUNG CANCER
     Route: 042
     Dates: start: 20160317, end: 20160317
  20. TREMELIMUMAB. [Suspect]
     Active Substance: TREMELIMUMAB
     Indication: NON-SMALL CELL LUNG CANCER
     Route: 042
     Dates: start: 20160610, end: 20160610
  21. COLAC [Concomitant]
     Indication: CONSTIPATION
     Dosage: 2.0DF AS REQUIRED
     Route: 048
     Dates: start: 20160415
  22. PLAVIX [Concomitant]
     Active Substance: CLOPIDOGREL BISULFATE
     Indication: CEREBRAL INFARCTION
     Route: 048
     Dates: end: 20161023

REACTIONS (1)
  - Fulminant type 1 diabetes mellitus [Recovered/Resolved with Sequelae]

NARRATIVE: CASE EVENT DATE: 20161022
